FAERS Safety Report 24080165 (Version 1)
Quarter: 2024Q3

REPORT INFORMATION
  Report Type: Spontaneous
  Country: US (occurrence: US)
  Receive Date: 20240711
  Receipt Date: 20240711
  Transmission Date: 20241017
  Serious: Yes (Hospitalization, Other)
  Sender: SANDOZ
  Company Number: US-SANDOZ-SDZ2024US063118

PATIENT
  Age: 0 Year
  Sex: Female
  Weight: 9.9 kg

DRUGS (15)
  1. REMODULIN [Suspect]
     Active Substance: TREPROSTINIL
     Indication: Pulmonary arterial hypertension
     Dosage: 0.0209 UG/KG, CONT
     Route: 058
     Dates: start: 202403
  2. REMODULIN [Suspect]
     Active Substance: TREPROSTINIL
     Dosage: 0.0222 UG/KG, CONT
     Route: 058
     Dates: start: 20240508
  3. REMODULIN [Suspect]
     Active Substance: TREPROSTINIL
     Dosage: 0.0234 UG/KG, CONT
     Route: 058
     Dates: start: 2024, end: 20240508
  4. REMODULIN [Suspect]
     Active Substance: TREPROSTINIL
     Dosage: 0.0316 UG/KG (AT AN INFUSION RATE OF 0.64 ML/HR), CONT
     Route: 058
     Dates: start: 20240607
  5. REMODULIN [Suspect]
     Active Substance: TREPROSTINIL
     Dosage: 0.0326 UG/KG, CONT
     Route: 058
     Dates: start: 202405
  6. REMODULIN [Suspect]
     Active Substance: TREPROSTINIL
     Dosage: 0.0376 UG/KG, CONT
     Route: 058
     Dates: start: 202406
  7. REMODULIN [Suspect]
     Active Substance: TREPROSTINIL
     Dosage: 0.0409 UG/KG, CONT
     Route: 058
     Dates: start: 20240627
  8. REMODULIN [Suspect]
     Active Substance: TREPROSTINIL
     Dosage: UNK (AT AN INFUSION RATE OF 0.036 ML/HR), CONTINUING,
     Route: 058
     Dates: start: 2024
  9. REMODULIN [Suspect]
     Active Substance: TREPROSTINIL
     Dosage: UNK, (AT AN INFUSION RATE OF 0.034 ML/HR), CONTINUING
     Route: 058
     Dates: start: 202406
  10. REMODULIN [Suspect]
     Active Substance: TREPROSTINIL
     Dosage: UNK, CONTINUING
     Route: 058
     Dates: start: 202403
  11. ZOFRAN [Suspect]
     Active Substance: ONDANSETRON HYDROCHLORIDE
     Indication: Vomiting
     Dosage: UNK
     Route: 065
  12. AMBRISENTAN [Concomitant]
     Active Substance: AMBRISENTAN
     Indication: Product used for unknown indication
     Dosage: UNK
     Route: 065
  13. ERYTHROMYCIN [Concomitant]
     Active Substance: ERYTHROMYCIN
     Indication: Product used for unknown indication
     Dosage: UNK
     Route: 065
  14. LEVAQUIN [Concomitant]
     Active Substance: LEVOFLOXACIN
     Indication: Product used for unknown indication
     Dosage: UNK
     Route: 065
  15. TADALAFIL [Concomitant]
     Active Substance: TADALAFIL
     Indication: Product used for unknown indication
     Dosage: UNK
     Route: 065

REACTIONS (10)
  - Vomiting [Recovering/Resolving]
  - Hypoxia [Recovered/Resolved]
  - Pulmonary arterial hypertension [Unknown]
  - Acute respiratory failure [Unknown]
  - Pneumonia pseudomonal [Unknown]
  - Device dislocation [Unknown]
  - Infusion site swelling [Unknown]
  - Gastrointestinal motility disorder [Unknown]
  - Drug intolerance [Unknown]
  - Therapy non-responder [Unknown]

NARRATIVE: CASE EVENT DATE: 20240610
